FAERS Safety Report 5031775-9 (Version None)
Quarter: 2006Q2

REPORT INFORMATION
  Report Type: 
  Country: None (occurrence: None)
  Receive Date: 20060619
  Receipt Date: 20060605
  Transmission Date: 20061013
  Serious: Yes (Hospitalization)
  Sender: FDA-Public Use
  Company Number: CAR_0068_2006

PATIENT
  Age: 53 Year
  Sex: Female

DRUGS (3)
  1. FLUOXETINE [Suspect]
     Indication: DEPRESSION
     Dosage: 20 MG QDAY PO
     Route: 048
  2. HYDROCHLOROTHIAZIDE [Suspect]
     Dosage: 25 MG QDAY PO
     Route: 048
  3. LOSARTAN [Concomitant]

REACTIONS (22)
  - ASTHENIA [None]
  - BLOOD CALCIUM DECREASED [None]
  - BLOOD GLUCOSE INCREASED [None]
  - BLOOD PRESSURE INCREASED [None]
  - CENTRAL PONTINE MYELINOLYSIS [None]
  - CONFUSIONAL STATE [None]
  - CONVULSION [None]
  - DISTURBANCE IN ATTENTION [None]
  - EXTENSOR PLANTAR RESPONSE [None]
  - FEEDING DISORDER [None]
  - HYPERREFLEXIA [None]
  - HYPOKALAEMIA [None]
  - INAPPROPRIATE ANTIDIURETIC HORMONE SECRETION [None]
  - LOSS OF CONSCIOUSNESS [None]
  - MEMORY IMPAIRMENT [None]
  - MUSCLE RIGIDITY [None]
  - NAUSEA [None]
  - PCO2 DECREASED [None]
  - PO2 DECREASED [None]
  - PSYCHOMOTOR SKILLS IMPAIRED [None]
  - VOMITING [None]
  - WHITE BLOOD CELL COUNT INCREASED [None]
